FAERS Safety Report 25522547 (Version 2)
Quarter: 2025Q3

REPORT INFORMATION
  Report Type: Spontaneous
  Country: JP (occurrence: JP)
  Receive Date: 20250707
  Receipt Date: 20250710
  Transmission Date: 20251020
  Serious: Yes (Other)
  Sender: Haleon PLC
  Company Number: JP-002147023-NVSJ2025JP006891

PATIENT
  Age: 50 Year
  Sex: Female

DRUGS (1)
  1. VOLTAREN [Suspect]
     Active Substance: DICLOFENAC SODIUM
     Indication: Product used for unknown indication
     Route: 048
     Dates: start: 201910

REACTIONS (1)
  - Cerebral infarction [Unknown]
